FAERS Safety Report 8814740 (Version 3)
Quarter: 2012Q4

REPORT INFORMATION
  Report Type: 
  Country: DE (occurrence: DE)
  Receive Date: 20120928
  Receipt Date: 20121116
  Transmission Date: 20130627
  Serious: Yes (Disabling, Other)
  Sender: FDA-Public Use
  Company Number: DE-BRISTOL-MYERS SQUIBB COMPANY-16977035

PATIENT
  Age: 50 Year
  Sex: Male
  Weight: 87 kg

DRUGS (3)
  1. YERVOY [Suspect]
     Indication: MALIGNANT MELANOMA
     Dosage: 3 cycle canceled.
2nd dose:28Aug2012
     Route: 042
     Dates: start: 20120828
  2. RAMIPRIL [Concomitant]
     Indication: HYPERTENSION
     Dosage: also received 10mg once daily
     Route: 048
  3. BISOPROLOL FUMARATE + HCTZ [Concomitant]
     Dosage: 1 DF= 10/25mg.
     Route: 048

REACTIONS (2)
  - Pleurisy [Not Recovered/Not Resolved]
  - Pleural effusion [Not Recovered/Not Resolved]
